FAERS Safety Report 24645351 (Version 1)
Quarter: 2024Q4

REPORT INFORMATION
  Report Type: Spontaneous
  Country: US (occurrence: US)
  Receive Date: 20241121
  Receipt Date: 20241121
  Transmission Date: 20250114
  Serious: No
  Sender: PAREXEL
  Company Number: US-COHERUS BIOSCIENCES, Inc.-2024-COH-US000111

PATIENT

DRUGS (3)
  1. UDENYCA [Suspect]
     Active Substance: PEGFILGRASTIM-CBQV
     Indication: Prophylaxis
     Dosage: 6 MG/0.6ML
     Route: 058
     Dates: start: 20240110
  2. UDENYCA [Suspect]
     Active Substance: PEGFILGRASTIM-CBQV
     Dosage: 6 MG
     Route: 058
     Dates: start: 20240131
  3. GAZYVA [Concomitant]
     Active Substance: OBINUTUZUMAB
     Dosage: UNK

REACTIONS (1)
  - Product dose omission issue [Not Recovered/Not Resolved]

NARRATIVE: CASE EVENT DATE: 20240221
